FAERS Safety Report 5879504-0 (Version None)
Quarter: 2008Q3

REPORT INFORMATION
  Report Type: 
  Country: None (occurrence: None)
  Receive Date: 20080911
  Receipt Date: 20080911
  Transmission Date: 20090109
  Serious: Yes (Life-Threatening, Hospitalization, Disabling, Other)
  Sender: FDA-Public Use
  Company Number: None

PATIENT
  Age: 53 Year
  Sex: Male
  Weight: 149.687 kg

DRUGS (2)
  1. BACTRIM DS [Suspect]
     Indication: ANTIBIOTIC PROPHYLAXIS
     Dosage: 1 TABLET 2 TIMES A DAY PO
     Route: 048
     Dates: start: 20080408, end: 20080409
  2. BACTRIM DS [Suspect]
     Indication: POSTOPERATIVE CARE
     Dosage: 1 TABLET 2 TIMES A DAY PO
     Route: 048
     Dates: start: 20080408, end: 20080409

REACTIONS (5)
  - ASTHENIA [None]
  - DRUG HYPERSENSITIVITY [None]
  - DYSPNOEA [None]
  - PAIN [None]
  - PAIN IN EXTREMITY [None]
